FAERS Safety Report 5344110-3 (Version None)
Quarter: 2007Q2

REPORT INFORMATION
  Report Type: 
  Country: None (occurrence: None)
  Receive Date: 20070604
  Receipt Date: 20070521
  Transmission Date: 20071010
  Serious: Yes (Hospitalization)
  Sender: FDA-Public Use
  Company Number: ES-KINGPHARMUSA00001-K200700631

PATIENT

DRUGS (6)
  1. FLORINEF [Suspect]
     Dosage: .15 MG, QD
  2. FLORINEF [Suspect]
     Dosage: .2 MG, QD
  3. LITHIUM CARBONATE [Suspect]
     Dosage: 1200 MG, QD
  4. PERICIAZINE [Concomitant]
  5. LORAZEPAM [Concomitant]
  6. HYDROCORTISONE [Concomitant]

REACTIONS (15)
  - ABDOMINAL DISCOMFORT [None]
  - ADDISON'S DISEASE [None]
  - ANOREXIA [None]
  - ASTHENIA [None]
  - BLOOD POTASSIUM INCREASED [None]
  - BLOOD PRESSURE DECREASED [None]
  - DEHYDRATION [None]
  - DRUG INTERACTION [None]
  - GRAND MAL CONVULSION [None]
  - HYPONATRAEMIA [None]
  - LEUKOCYTOSIS [None]
  - LOSS OF CONSCIOUSNESS [None]
  - NAUSEA [None]
  - SKIN HYPERPIGMENTATION [None]
  - VOMITING [None]
